FAERS Safety Report 4878538-2 (Version None)
Quarter: 2006Q1

REPORT INFORMATION
  Report Type: 
  Country: None (occurrence: None)
  Receive Date: 20060110
  Receipt Date: 20060103
  Transmission Date: 20060701
  Serious: Yes (Hospitalization, Other)
  Sender: FDA-Public Use
  Company Number: SUS1-2005-00827

PATIENT
  Age: 11 Year
  Sex: Male

DRUGS (2)
  1. ADDERALL XR 25 [Suspect]
     Dosage: SEE IMAGE
     Dates: start: 20050204, end: 20050101
  2. ADDERALL XR 25 [Suspect]
     Dosage: SEE IMAGE
     Dates: start: 20030106

REACTIONS (6)
  - DRUG INEFFECTIVE [None]
  - HOMICIDAL IDEATION [None]
  - OPPOSITIONAL DEFIANT DISORDER [None]
  - PRESCRIBED OVERDOSE [None]
  - PSYCHOTIC DISORDER [None]
  - SUICIDAL IDEATION [None]
